FAERS Safety Report 6164497-1 (Version None)
Quarter: 2009Q2

REPORT INFORMATION
  Report Type: 
  Country: None (occurrence: None)
  Receive Date: 20090421
  Receipt Date: 20090407
  Transmission Date: 20091009
  Serious: Yes (Hospitalization)
  Sender: FDA-Public Use
  Company Number: FR-1169186

PATIENT
  Age: 56 Year
  Sex: Female

DRUGS (6)
  1. TOBRADEX [Suspect]
     Dosage: 3 GTTS OPTHALMIC
     Route: 047
  2. OCUFEN [Concomitant]
  3. KETOPROFEN [Concomitant]
  4. TRAMADOL HCL [Concomitant]
  5. VITAMIN A [Concomitant]
  6. PRIMPERAN ELIXIR [Concomitant]

REACTIONS (6)
  - EYE PAIN [None]
  - INFLAMMATORY PAIN [None]
  - OEDEMA [None]
  - PROCEDURAL NAUSEA [None]
  - PROCEDURAL PAIN [None]
  - PROCEDURAL VOMITING [None]
